FAERS Safety Report 10234323 (Version 1)
Quarter: 2014Q2

REPORT INFORMATION
  Report Type: Spontaneous
  Country: US (occurrence: US)
  Receive Date: 20140612
  Receipt Date: 20140612
  Transmission Date: 20141212
  Serious: No
  Sender: FDA-Public Use
  Company Number: US-009507513-1405USA011305

PATIENT
  Age: 27 Year
  Sex: Female
  Weight: 84.26 kg

DRUGS (1)
  1. NEXPLANON [Suspect]
     Indication: CONTRACEPTION
     Dosage: UNK
     Route: 059
     Dates: start: 20140314, end: 20140521

REACTIONS (5)
  - Erythema [Unknown]
  - Peripheral swelling [Unknown]
  - Hypokinesia [Unknown]
  - Implant site discharge [Unknown]
  - Device deployment issue [Recovered/Resolved]
